FAERS Safety Report 23701533 (Version 1)
Quarter: 2024Q2

REPORT INFORMATION
  Report Type: Spontaneous
  Country: US (occurrence: None)
  Receive Date: 20240402
  Receipt Date: 20240402
  Transmission Date: 20240715
  Serious: Yes (Death)
  Sender: FDA-Public Use
  Company Number: None

PATIENT
  Sex: Male

DRUGS (10)
  1. REVLIMID [Suspect]
     Active Substance: LENALIDOMIDE
     Indication: Plasma cell myeloma
     Dosage: 10 MG DAILY ORAL
     Route: 048
     Dates: start: 20200203, end: 20240321
  2. ARICEPT [Concomitant]
     Active Substance: DONEPEZIL HYDROCHLORIDE
  3. PRAVASTATIN [Concomitant]
     Active Substance: PRAVASTATIN
  4. MIDODRINE [Concomitant]
     Active Substance: MIDODRINE
  5. GABAPENTIN [Concomitant]
     Active Substance: GABAPENTIN
  6. TRADJENTA [Concomitant]
     Active Substance: LINAGLIPTIN
  7. VALTREX [Concomitant]
     Active Substance: VALACYCLOVIR HYDROCHLORIDE
  8. ZYRTEC [Concomitant]
     Active Substance: CETIRIZINE HYDROCHLORIDE
  9. MEMANTINE [Concomitant]
     Active Substance: MEMANTINE
  10. LINZESS [Concomitant]
     Active Substance: LINACLOTIDE

REACTIONS (1)
  - Myocardial infarction [None]
